FAERS Safety Report 21805591 (Version 1)
Quarter: 2023Q1

REPORT INFORMATION
  Report Type: Report from Study
  Country: US (occurrence: US)
  Receive Date: 20230102
  Receipt Date: 20230102
  Transmission Date: 20230417
  Serious: Yes (Other)
  Sender: FDA-Public Use
  Company Number: US-TAKEDA-2022TUS103640

PATIENT
  Sex: Male

DRUGS (2)
  1. VEDOLIZUMAB [Suspect]
     Active Substance: VEDOLIZUMAB
     Indication: Crohn^s disease
     Dosage: 300 MILLIGRAM, Q6WEEKS
     Route: 042
  2. VEDOLIZUMAB [Suspect]
     Active Substance: VEDOLIZUMAB
     Indication: Diarrhoea

REACTIONS (8)
  - Crohn^s disease [Unknown]
  - Diabetes mellitus [Unknown]
  - Intracranial aneurysm [Unknown]
  - Weight decreased [Unknown]
  - Cardiac disorder [Unknown]
  - Illness [Unknown]
  - Fatigue [Unknown]
  - Off label use [Unknown]
